FAERS Safety Report 8589800-4 (Version None)
Quarter: 2012Q3

REPORT INFORMATION
  Report Type: 
  Country: None (occurrence: None)
  Receive Date: 20120813
  Receipt Date: 20120112
  Transmission Date: 20120928
  Serious: Yes (Hospitalization)
  Sender: FDA-Public Use
  Company Number: US-ROCHE-1098731

PATIENT
  Age: 53 Year
  Sex: Male

DRUGS (2)
  1. LIDOCAINE [Concomitant]
     Route: 042
  2. ACTIVASE [Suspect]
     Indication: ACUTE MYOCARDIAL INFARCTION

REACTIONS (2)
  - VENTRICULAR TACHYCARDIA [None]
  - CHEST PAIN [None]
